FAERS Safety Report 10970616 (Version 1)
Quarter: 2015Q1

REPORT INFORMATION
  Report Type: Spontaneous
  Country: PL (occurrence: PL)
  Receive Date: 20150331
  Receipt Date: 20150331
  Transmission Date: 20150721
  Serious: Yes (Other)
  Sender: FDA-Public Use
  Company Number: PL-BAYER-2015-084954

PATIENT
  Age: 42 Year
  Sex: Female

DRUGS (1)
  1. MIRENA [Suspect]
     Active Substance: LEVONORGESTREL
     Indication: CONTRACEPTION
     Dosage: 20 MCG/24HR, CONT
     Route: 015
     Dates: start: 201501

REACTIONS (10)
  - Genital haemorrhage [None]
  - Vaginal haemorrhage [None]
  - Dizziness [None]
  - Feeling abnormal [None]
  - Nervousness [None]
  - Abdominal distension [None]
  - Premenstrual syndrome [None]
  - Asthenia [None]
  - Food craving [None]
  - Oedema [None]

NARRATIVE: CASE EVENT DATE: 2015
